FAERS Safety Report 5358534-1 (Version None)
Quarter: 2007Q2

REPORT INFORMATION
  Report Type: 
  Country: None (occurrence: None)
  Receive Date: 20070613
  Receipt Date: 20070613
  Transmission Date: 20071010
  Serious: Yes (Life-Threatening, Hospitalization)
  Sender: FDA-Public Use
  Company Number: None

PATIENT
  Age: 21 Year
  Sex: Female
  Weight: 71.9 kg

DRUGS (7)
  1. CARBAMAZEPINE [Suspect]
     Indication: DRUG USE FOR UNKNOWN INDICATION
     Dosage: 200MG BID PO
     Route: 048
     Dates: start: 20061004, end: 20061024
  2. AMITRIPTYLINE HCL [Concomitant]
  3. GABAPENTIN [Concomitant]
  4. AMANTADINE HCL [Concomitant]
  5. BACLOFEN [Concomitant]
  6. INTERFERON BETA-1A [Concomitant]
  7. TRINESSA [Concomitant]

REACTIONS (2)
  - DYSPHAGIA [None]
  - STEVENS-JOHNSON SYNDROME [None]
